FAERS Safety Report 5939553-0 (Version None)
Quarter: 2008Q4

REPORT INFORMATION
  Report Type: 
  Country: None (occurrence: None)
  Receive Date: 20081029
  Receipt Date: 20081017
  Transmission Date: 20090506
  Serious: Yes (Life-Threatening)
  Sender: FDA-Public Use
  Company Number: 100#03#2008-05309

PATIENT
  Age: 63 Year
  Sex: Male

DRUGS (10)
  1. DOXYCYCLINE (DOXYCYCLINE) [Suspect]
     Indication: ROSACEA
     Dosage: 100 MG ORAL
     Route: 048
     Dates: start: 20080512, end: 20080909
  2. ACETYLSALICYLIC ACID SRT [Concomitant]
  3. ACETAMINOPHEN W/ CODEINE [Concomitant]
  4. DILTIAZEM (DILTIAZEM, DILTIAZEM HYDROCHLORIDE) [Concomitant]
  5. DOXAZOSIN (DOXAZOSIN) [Concomitant]
  6. MYCOPHENOLATE MOFETIL (MYCOPHENOLATE ACID) [Concomitant]
  7. OMEPRAZOLE [Concomitant]
  8. PERINDOPRIL TERT-BUTYLAMINE (PERINDOPRIL) [Concomitant]
  9. PRAVASTATIN [Concomitant]
  10. PREDNISONE [Concomitant]

REACTIONS (5)
  - APATHY [None]
  - DEPRESSED MOOD [None]
  - DISTURBANCE IN ATTENTION [None]
  - IRRITABILITY [None]
  - SUICIDAL IDEATION [None]
